FAERS Safety Report 17450859 (Version 3)
Quarter: 2020Q3

REPORT INFORMATION
  Report Type: Spontaneous
  Country: US (occurrence: US)
  Receive Date: 20200224
  Receipt Date: 20200820
  Transmission Date: 20201102
  Serious: Yes (Hospitalization)
  Sender: FDA-Public Use
  Company Number: US-VERTEX PHARMACEUTICALS-2020-001518

PATIENT
  Age: 60 Year
  Sex: Female

DRUGS (2)
  1. TRIKAFTA [Suspect]
     Active Substance: ELEXACAFTOR\IVACAFTOR\TEZACAFTOR
     Indication: CYSTIC FIBROSIS
     Dosage: REGULAR (100MG ELEXACAFTOR/ 50 MG TEZACAFTOR/ 75 MG IVACAFTOR ;150 MG IVACAFTOR)
     Route: 048
     Dates: start: 20191206
  2. TRIKAFTA [Suspect]
     Active Substance: ELEXACAFTOR\IVACAFTOR\TEZACAFTOR
     Dosage: ALTERNATE DOSE
     Route: 048

REACTIONS (12)
  - Productive cough [Recovered/Resolved]
  - Insomnia [Recovering/Resolving]
  - Chills [Recovered/Resolved]
  - Nausea [Not Recovered/Not Resolved]
  - Eye irritation [Recovered/Resolved]
  - Dry eye [Not Recovered/Not Resolved]
  - Haemoptysis [Not Recovered/Not Resolved]
  - Weight decreased [Unknown]
  - Pyrexia [Recovered/Resolved]
  - Pulmonary function test decreased [Recovering/Resolving]
  - Fatigue [Recovered/Resolved]
  - Decreased appetite [Not Recovered/Not Resolved]

NARRATIVE: CASE EVENT DATE: 201912
